FAERS Safety Report 18692052 (Version 2)
Quarter: 2021Q1

REPORT INFORMATION
  Report Type: Spontaneous
  Country: ES (occurrence: ES)
  Receive Date: 20210102
  Receipt Date: 20210106
  Transmission Date: 20210419
  Serious: Yes (Other)
  Sender: FDA-Public Use
  Company Number: ES-ACCORD-213217

PATIENT
  Age: 84 Year
  Sex: Male
  Weight: 75 kg

DRUGS (3)
  1. AZITHROMYCIN ANHYDROUS. [Interacting]
     Active Substance: AZITHROMYCIN ANHYDROUS
     Indication: COVID-19
     Dosage: AZITHROMYCIN  (7019A)
     Dates: start: 20200414, end: 20200418
  2. HYDROXYCHLOROQUINE [Suspect]
     Active Substance: HYDROXYCHLOROQUINE
     Indication: COVID-19
     Dosage: HYDROXYCHLOROQUINE (2143A)
     Dates: start: 20200414, end: 20200419
  3. LOPINAVIR/RITONAVIR [Interacting]
     Active Substance: LOPINAVIR\RITONAVIR
     Indication: COVID-19
     Dates: start: 20200414, end: 20200415

REACTIONS (3)
  - Drug interaction [Unknown]
  - Off label use [Unknown]
  - Andersen-Tawil syndrome [Recovered/Resolved]

NARRATIVE: CASE EVENT DATE: 20200415
